FAERS Safety Report 17207821 (Version 1)
Quarter: 2019Q4

REPORT INFORMATION
  Report Type: Spontaneous
  Country: CH (occurrence: CH)
  Receive Date: 20191227
  Receipt Date: 20191227
  Transmission Date: 20200122
  Serious: Yes (Death, Hospitalization, Other)
  Sender: FDA-Public Use
  Company Number: CH-PFIZER INC-2019554201

PATIENT
  Age: 61 Year
  Sex: Female
  Weight: 70 kg

DRUGS (6)
  1. LEGALON [Concomitant]
     Active Substance: DIETARY SUPPLEMENT\HERBALS\MILK THISTLE
     Dosage: 140 MG, DAILY
     Route: 048
  2. IBEROGAST [Concomitant]
     Active Substance: HERBALS
     Dosage: UNK
  3. FARLUTAL [Suspect]
     Active Substance: MEDROXYPROGESTERONE ACETATE
     Indication: PERITONEAL CARCINOMA METASTATIC
     Dosage: 500 MG, DAILY
     Route: 048
     Dates: start: 20191031, end: 20191205
  4. PANTOZOL [Concomitant]
     Active Substance: PANTOPRAZOLE SODIUM
     Dosage: 80 MG, DAILY
     Route: 048
  5. EUTHYROX [Concomitant]
     Active Substance: LEVOTHYROXINE SODIUM
     Dosage: 100 UG, DAILY
     Route: 048
     Dates: start: 201704
  6. VI-DE 3 [Concomitant]
     Active Substance: CHOLECALCIFEROL
     Dosage: 10000 IU, GTT, DAILY
     Route: 048

REACTIONS (6)
  - N-terminal prohormone brain natriuretic peptide increased [Unknown]
  - Right ventricular failure [Fatal]
  - Cardiovascular disorder [Unknown]
  - Pulmonary arterial hypertension [Unknown]
  - Dyspnoea [Unknown]
  - Dyspnoea exertional [Unknown]

NARRATIVE: CASE EVENT DATE: 20191031
